FAERS Safety Report 8523276 (Version 2)
Quarter: 2012Q4

REPORT INFORMATION
  Report Type: 
  Country: US (occurrence: US)
  Receive Date: 20120420
  Receipt Date: 20121105
  Transmission Date: 20130627
  Serious: Yes (Life-Threatening, Other)
  Sender: FDA-Public Use
  Company Number: PHEH2011US00996

PATIENT
  Sex: Female

DRUGS (6)
  1. RECLAST [Suspect]
     Indication: OSTEOPOROSIS
     Route: 042
     Dates: start: 201108
  2. CALCIUM [Concomitant]
     Dosage: UNK UKN, UNK
  3. HYDROCHLOROTHIAZIDE [Concomitant]
     Dosage: UNK UKN, UNK
  4. BABY ASPIRIN [Concomitant]
     Dosage: UNK UKN, once a day
  5. GLUCOSAMINE W/CHONDROITIN [Concomitant]
     Dosage: UNK UKN, UNK
  6. VITAMIN E [Concomitant]
     Dosage: UNK UKN, UNK

REACTIONS (13)
  - Feeling abnormal [Unknown]
  - Malaise [Unknown]
  - Eye inflammation [Unknown]
  - Ocular hyperaemia [Unknown]
  - Eye pain [Unknown]
  - Influenza like illness [Unknown]
  - Hyperhidrosis [Unknown]
  - Nasopharyngitis [Unknown]
  - Tremor [Unknown]
  - Spinal pain [Unknown]
  - Gait disturbance [Unknown]
  - Myalgia [Unknown]
  - Pain [Unknown]
